FAERS Safety Report 9855252 (Version 1)
Quarter: 2013Q4

REPORT INFORMATION
  Report Type: Spontaneous
  Country: US (occurrence: None)
  Receive Date: 20131226
  Receipt Date: 20131226
  Transmission Date: 20140711
  Serious: Yes (Other)
  Sender: FDA-Public Use
  Company Number: PHEH2013US016956

PATIENT
  Age: 33 Year
  Sex: Female

DRUGS (4)
  1. GILENYA (FINGOLIMOD) CAPSULE, 0.5MG [Suspect]
     Indication: MULTIPLE SCLEROSIS
     Route: 048
     Dates: start: 20130210, end: 201304
  2. PRAMIPEXOLE (PRAMIPEXOLE) [Concomitant]
  3. FIORICET W/CODEINE (BUTALBITAL, CAFFEINE, CODEINE PHOSPHATE, PARACETAMOL) [Concomitant]
  4. CALCIUM+VIT D (CALCIUM, COLECALCIFEROL) [Concomitant]

REACTIONS (3)
  - Depression [None]
  - Anxiety [None]
  - Agitation [None]
